FAERS Safety Report 9080815 (Version 3)
Quarter: 2013Q2

REPORT INFORMATION
  Report Type: Spontaneous
  Country: US (occurrence: US)
  Receive Date: 20130218
  Receipt Date: 20130415
  Transmission Date: 20140414
  Serious: Yes (Disabling, Other)
  Sender: FDA-Public Use
  Company Number: US-JNJFOC-20130204509

PATIENT
  Age: 53 Year
  Sex: Male
  Weight: 99.79 kg

DRUGS (12)
  1. STELARA [Suspect]
     Indication: PSORIASIS
     Dosage: EVERY 0, 1 AND 3 MONTHS
     Route: 058
     Dates: start: 20120807
  2. STELARA [Suspect]
     Indication: PSORIASIS
     Dosage: EVERY 0, 1 AND 3 MONTHS
     Route: 058
     Dates: end: 20121130
  3. STELARA [Suspect]
     Indication: PSORIASIS
     Dosage: EVERY 0, 1 AND 3 MONTHS
     Route: 058
     Dates: start: 20110228, end: 20110329
  4. METHOTREXATE [Suspect]
     Indication: PSORIASIS
     Dosage: TOTAL QUANTITY WAS 30 IN A MONTH
     Route: 048
     Dates: start: 20110131
  5. METHOTREXATE [Suspect]
     Indication: PSORIASIS
     Dosage: 7.5-15 MG
     Route: 048
     Dates: start: 1998, end: 1999
  6. ENBREL [Suspect]
     Indication: PSORIASIS
     Dosage: APPROXIMATELY FOR 6 MONTHS, EPISODICALLY
     Route: 058
     Dates: start: 2008, end: 2009
  7. PSORALEN ULTRAVIOLET A [Suspect]
     Indication: PSORIASIS
     Dosage: 2-3 TIMES 6 MONTHS, EPISODICALLY
     Route: 065
     Dates: start: 1987, end: 1988
  8. TEGRETOL [Concomitant]
     Route: 065
  9. CLOBETASOL [Concomitant]
     Indication: PSORIASIS
     Route: 065
  10. DOVONEX [Concomitant]
     Indication: PSORIASIS
     Route: 065
  11. TACLONEX [Concomitant]
     Indication: PSORIASIS
     Route: 065
  12. LOCOID LIPOCREAM [Concomitant]
     Indication: PSORIASIS
     Route: 065

REACTIONS (6)
  - Hypoaesthesia [Unknown]
  - Visual impairment [Unknown]
  - B-cell small lymphocytic lymphoma stage III [Not Recovered/Not Resolved]
  - Diffuse large B-cell lymphoma [Not Recovered/Not Resolved]
  - Lymphadenopathy [Unknown]
  - Paraesthesia [None]
